FAERS Safety Report 6044908-2 (Version None)
Quarter: 2009Q1

REPORT INFORMATION
  Report Type: 
  Country: None (occurrence: None)
  Receive Date: 20090121
  Receipt Date: 20090112
  Transmission Date: 20090719
  Serious: Yes (Other)
  Sender: FDA-Public Use
  Company Number: CH-PFIZER INC-2008060582

PATIENT

DRUGS (8)
  1. SORTIS [Suspect]
     Indication: ANGINA PECTORIS
     Route: 048
     Dates: start: 20080308, end: 20080415
  2. SORTIS [Suspect]
     Indication: CORONARY ARTERY DISEASE
  3. SORTIS [Suspect]
     Indication: ISCHAEMIC CARDIOMYOPATHY
  4. IOMEPROL [Suspect]
     Indication: DIAGNOSTIC PROCEDURE
     Dosage: 80 ML, SINGLE
     Dates: start: 20080228, end: 20080228
  5. ADALAT CC [Suspect]
     Indication: HYPERTENSION
     Dosage: DAILY
     Dates: start: 20020220
  6. ASPIRIN [Suspect]
     Indication: ANGINA PECTORIS
     Dosage: DAILY
     Dates: start: 20080220
  7. ASPIRIN [Suspect]
     Indication: CORONARY ARTERY DISEASE
  8. NORVASC [Concomitant]
     Indication: ANGINA PECTORIS

REACTIONS (3)
  - CUTANEOUS VASCULITIS [None]
  - PSORIASIS [None]
  - RASH PRURITIC [None]
